FAERS Safety Report 6316197-2 (Version None)
Quarter: 2009Q3

REPORT INFORMATION
  Report Type: 
  Country: None (occurrence: None)
  Receive Date: 20090819
  Receipt Date: 20090819
  Transmission Date: 20100115
  Serious: Yes (Other)
  Sender: FDA-Public Use
  Company Number: None

PATIENT
  Age: 39 Year
  Sex: Male
  Weight: 90.7194 kg

DRUGS (2)
  1. PROVENTIL [Suspect]
     Indication: ASTHMA EXERCISE INDUCED
     Dosage: 1 PUMP PRN INHAL
     Route: 055
     Dates: start: 20080101, end: 20090816
  2. PROVENTIL [Suspect]
     Indication: HYPERSENSITIVITY
     Dosage: 1 PUMP PRN INHAL
     Route: 055
     Dates: start: 20080101, end: 20090816

REACTIONS (10)
  - BRONCHIAL IRRITATION [None]
  - BURNING SENSATION [None]
  - COUGH [None]
  - DISCOMFORT [None]
  - LUNG DISORDER [None]
  - PAIN [None]
  - PRODUCT MEASURED POTENCY ISSUE [None]
  - PRODUCT QUALITY ISSUE [None]
  - RESPIRATORY TRACT IRRITATION [None]
  - THROAT IRRITATION [None]
